FAERS Safety Report 10471488 (Version 1)
Quarter: 2014Q3

REPORT INFORMATION
  Report Type: Spontaneous
  Country: FR (occurrence: FR)
  Receive Date: 20140923
  Receipt Date: 20140923
  Transmission Date: 20150326
  Serious: Yes (Hospitalization, Other)
  Sender: FDA-Public Use
  Company Number: FR-PFIZER INC-2014259134

PATIENT
  Age: 57 Year
  Sex: Female

DRUGS (2)
  1. LYRICA [Suspect]
     Active Substance: PREGABALIN
     Dosage: 25 MG, DAILY
  2. LEVOTHYROX [Concomitant]
     Active Substance: LEVOTHYROXINE

REACTIONS (11)
  - Paralysis [Unknown]
  - Pain in extremity [Unknown]
  - Muscle disorder [Not Recovered/Not Resolved]
  - Dry eye [Unknown]
  - Allergy to chemicals [Unknown]
  - Urticaria [Unknown]
  - Suicide attempt [Unknown]
  - Musculoskeletal stiffness [Unknown]
  - Euphoric mood [Unknown]
  - Muscle contractions involuntary [Unknown]
  - Mood swings [Unknown]
